FAERS Safety Report 25907096 (Version 2)
Quarter: 2025Q4

REPORT INFORMATION
  Report Type: Spontaneous
  Country: US (occurrence: US)
  Receive Date: 20251010
  Receipt Date: 20251202
  Transmission Date: 20260117
  Serious: No
  Sender: BAYER HEALTHCARE PHARMACEUTICALS INC.
  Company Number: US-BAYER-2025A131738

PATIENT
  Age: 47 Year
  Sex: Female

DRUGS (2)
  1. CLIMARA PRO [Suspect]
     Active Substance: ESTRADIOL\LEVONORGESTREL
     Indication: Premature menopause
     Dosage: 045/.015 MG PATCH
     Route: 062
  2. ESTRADIOL [Concomitant]
     Active Substance: ESTRADIOL

REACTIONS (2)
  - Application site rash [Not Recovered/Not Resolved]
  - Device adhesion issue [None]

NARRATIVE: CASE EVENT DATE: 20251003
